FAERS Safety Report 12471485 (Version 1)
Quarter: 2016Q2

REPORT INFORMATION
  Report Type: Spontaneous
  Country: US (occurrence: None)
  Receive Date: 20160615
  Receipt Date: 20160615
  Transmission Date: 20160815
  Serious: Yes (Life-Threatening, Hospitalization)
  Sender: FDA-Public Use
  Company Number: None

PATIENT
  Age: 31 Year
  Sex: Female
  Weight: 122 kg

DRUGS (1)
  1. KETOROLAC, 30 MG/ML [Suspect]
     Active Substance: KETOROLAC\KETOROLAC TROMETHAMINE
     Indication: PAIN
     Route: 040
     Dates: start: 20150305

REACTIONS (9)
  - Rash generalised [None]
  - Eye discharge [None]
  - Stevens-Johnson syndrome [None]
  - Mouth swelling [None]
  - Pharyngeal oedema [None]
  - Tachycardia [None]
  - Conjunctivitis [None]
  - Hypersensitivity [None]
  - Tachypnoea [None]

NARRATIVE: CASE EVENT DATE: 20150306
